FAERS Safety Report 4790568-8 (Version None)
Quarter: 2005Q4

REPORT INFORMATION
  Report Type: 
  Country: None (occurrence: None)
  Receive Date: 20051005
  Receipt Date: 20050919
  Transmission Date: 20060501
  Serious: Yes (Death)
  Sender: FDA-Public Use
  Company Number: ACO_0184_2005

PATIENT
  Age: 58 Year

DRUGS (3)
  1. TIZANIDINE HCL [Suspect]
     Dosage: DF UNK PO
     Route: 048
  2. ETHANOL [Suspect]
  3. OPIOID [Suspect]

REACTIONS (2)
  - COMPLETED SUICIDE [None]
  - INTENTIONAL DRUG MISUSE [None]
